FAERS Safety Report 7780023-5 (Version None)
Quarter: 2011Q3

REPORT INFORMATION
  Report Type: 
  Country: None (occurrence: None)
  Receive Date: 20110927
  Receipt Date: 20110908
  Transmission Date: 20111222
  Serious: No
  Sender: FDA-Public Use
  Company Number: US-JNJFOC-20110904188

PATIENT
  Sex: Female

DRUGS (2)
  1. ZYRTEC [Concomitant]
     Indication: FOOD ALLERGY
     Route: 065
  2. INVEGA [Suspect]
     Indication: SCHIZOPHRENIA
     Route: 048
     Dates: start: 20071201, end: 20110831

REACTIONS (3)
  - JOINT STIFFNESS [None]
  - PRURITUS [None]
  - RASH [None]
